FAERS Safety Report 24305237 (Version 1)
Quarter: 2024Q3

REPORT INFORMATION
  Report Type: Spontaneous
  Country: US (occurrence: US)
  Receive Date: 20240911
  Receipt Date: 20240911
  Transmission Date: 20241017
  Serious: No
  Sender: AUROBINDO
  Company Number: US-AUROBINDO-AUR-APL-2024-027857

PATIENT
  Age: 51 Year
  Sex: Female
  Weight: 76.65 kg

DRUGS (2)
  1. ALPRAZOLAM [Suspect]
     Active Substance: ALPRAZOLAM
     Indication: Generalised anxiety disorder
     Dosage: 1 MILLIGRAM, FOUR TIMES/DAY
     Route: 048
     Dates: start: 20240401
  2. ALPRAZOLAM [Suspect]
     Active Substance: ALPRAZOLAM
     Indication: Panic attack

REACTIONS (9)
  - Vomiting [Recovered/Resolved]
  - Condition aggravated [Unknown]
  - Confusional state [Unknown]
  - Dizziness [Unknown]
  - Loss of personal independence in daily activities [Recovered/Resolved]
  - Therapeutic response changed [Recovered/Resolved]
  - Product substitution issue [Recovered/Resolved]
  - Drug ineffective [Unknown]
  - Product label issue [Unknown]
